FAERS Safety Report 15368360 (Version 1)
Quarter: 2018Q3

REPORT INFORMATION
  Report Type: Spontaneous
  Country: PL (occurrence: PL)
  Receive Date: 20180910
  Receipt Date: 20180910
  Transmission Date: 20181010
  Serious: Yes (Other)
  Sender: FDA-Public Use
  Company Number: PL-SA-2018SA162466

PATIENT
  Age: 60 Year
  Sex: Female
  Weight: 52 kg

DRUGS (2)
  1. TOUJEO [Suspect]
     Active Substance: INSULIN GLARGINE
     Dosage: UNK, EACH EVENING
     Route: 065
  2. INSULIN LISPRO [Interacting]
     Active Substance: INSULIN LISPRO
     Dosage: UNK UNK, UNKNOWN
     Route: 065
     Dates: start: 20180526

REACTIONS (5)
  - Drug interaction [Unknown]
  - Wrong drug administered [Unknown]
  - Osteomyelitis [Unknown]
  - Hypoglycaemia [Unknown]
  - Hyperglycaemia [Unknown]

NARRATIVE: CASE EVENT DATE: 20180526
